FAERS Safety Report 14773027 (Version 2)
Quarter: 2018Q2

REPORT INFORMATION
  Report Type: Report from Study
  Country: NL (occurrence: NL)
  Receive Date: 20180418
  Receipt Date: 20180503
  Transmission Date: 20180711
  Serious: Yes (Hospitalization)
  Sender: FDA-Public Use
  Company Number: NL-ROCHE-2106479

PATIENT
  Age: 66 Year
  Sex: Male
  Weight: 82.1 kg

DRUGS (3)
  1. VENETOCLAX. [Suspect]
     Active Substance: VENETOCLAX
     Indication: CHRONIC LYMPHOCYTIC LEUKAEMIA
     Dosage: CYCLE 1: 20 MG (2 TABS AT 10 MG), D22-28, EVERY 28 DAYS; CYCLE 2: 50 MG (1 TABS AT 50 MG), D1-7; 100
     Route: 048
     Dates: start: 20180201
  2. RITUXIMAB. [Suspect]
     Active Substance: RITUXIMAB
     Indication: CHRONIC LYMPHOCYTIC LEUKAEMIA
     Dosage: CYCLE 1: 375 MG/M2, D 0; CYCLES 2-6: 500 MG/M2, D1; EVERY 28 DAYS AS PER THE PROTOCOL?DATE OF LAST D
     Route: 042
     Dates: start: 20180201
  3. ALLOPURINOL. [Concomitant]
     Active Substance: ALLOPURINOL
     Route: 048
     Dates: start: 20180329

REACTIONS (1)
  - Skin infection [Recovered/Resolved]

NARRATIVE: CASE EVENT DATE: 20180403
